FAERS Safety Report 8005279-5 (Version None)
Quarter: 2011Q4

REPORT INFORMATION
  Report Type: 
  Country: None (occurrence: None)
  Receive Date: 20111223
  Receipt Date: 20111214
  Transmission Date: 20120403
  Serious: Yes (Other)
  Sender: FDA-Public Use
  Company Number: CA-JNJFOC-20111208218

PATIENT
  Sex: Male
  Weight: 89.2 kg

DRUGS (1)
  1. REMICADE [Suspect]
     Indication: CROHN'S DISEASE
     Route: 042
     Dates: start: 20111031

REACTIONS (5)
  - ARTHRITIS [None]
  - SINUS CONGESTION [None]
  - COUGH [None]
  - PAIN [None]
  - OROPHARYNGEAL PAIN [None]
